FAERS Safety Report 9470218 (Version 3)
Quarter: 2013Q4

REPORT INFORMATION
  Report Type: Report from Study
  Country: US (occurrence: US)
  Receive Date: 20130822
  Receipt Date: 20131118
  Transmission Date: 20140711
  Serious: Yes (Other)
  Sender: FDA-Public Use
  Company Number: US-BAYER-2013-092922

PATIENT
  Age: 60 Year
  Sex: Male

DRUGS (2)
  1. STIVARGA [Suspect]
     Indication: COLON CANCER
     Dosage: 160 MG, QD
     Route: 048
  2. STIVARGA [Suspect]
     Indication: COLON CANCER
     Dosage: 40 MG DAILY
     Route: 048

REACTIONS (10)
  - Dysphonia [None]
  - Abdominal pain [None]
  - Blood pressure increased [None]
  - Blister [None]
  - Hyperkeratosis [None]
  - Erythema [None]
  - Rash macular [None]
  - Fatigue [Not Recovered/Not Resolved]
  - Asthenia [None]
  - Dehydration [None]
